FAERS Safety Report 6078480-8 (Version None)
Quarter: 2009Q1

REPORT INFORMATION
  Report Type: 
  Country: None (occurrence: None)
  Receive Date: 20090211
  Receipt Date: 20090211
  Transmission Date: 20090719
  Serious: No
  Sender: FDA-Public Use
  Company Number: None

PATIENT
  Age: 37 Year
  Sex: Female
  Weight: 90.7194 kg

DRUGS (1)
  1. LAMOTRIGINE [Suspect]
     Indication: CONVULSION
     Dosage: 200 MGS. 1 1/2 AM 1 1/2 PM PO
     Route: 048
     Dates: start: 20081218, end: 20081225

REACTIONS (3)
  - DIPLOPIA [None]
  - DIZZINESS [None]
  - NAUSEA [None]
